FAERS Safety Report 4286344-5 (Version None)
Quarter: 2004Q1

REPORT INFORMATION
  Report Type: 
  Country: None (occurrence: None)
  Receive Date: 20040121
  Receipt Date: 20030211
  Transmission Date: 20041129
  Serious: Yes (Other)
  Sender: FDA-Public Use
  Company Number: A03200300283

PATIENT
  Age: 70 Year
  Sex: Female
  Weight: 58.9676 kg

DRUGS (9)
  1. PLAVIX [Suspect]
     Indication: TRANSIENT ISCHAEMIC ATTACK
     Dosage: 75 MG QD - ORAL
     Route: 048
     Dates: start: 20020907, end: 20020907
  2. DIPHENHYDRAMINE + ACETOMINOPHEN [Concomitant]
  3. ACETYLSALICYLIC ACID SRT [Concomitant]
  4. FEXOFENADINE HYDROCHLORIDE [Concomitant]
  5. CANDESARTAN CILEXETIL [Concomitant]
  6. ATORVASTATIN [Concomitant]
  7. WARFARIN SODIUM [Concomitant]
  8. ESTROGEN NOS [Concomitant]
  9. MULTI-VITAMIN [Concomitant]

REACTIONS (1)
  - SYNCOPE [None]
